FAERS Safety Report 24784715 (Version 1)
Quarter: 2024Q4

REPORT INFORMATION
  Report Type: Spontaneous
  Country: US (occurrence: US)
  Receive Date: 20241227
  Receipt Date: 20241227
  Transmission Date: 20250115
  Serious: No
  Sender: ALEXION PHARMACEUTICALS
  Company Number: US-ASTRAZENECA-202412USA022975US

PATIENT
  Age: 58 Year

DRUGS (8)
  1. FARXIGA [Suspect]
     Active Substance: DAPAGLIFLOZIN PROPANEDIOL
  2. FARXIGA [Suspect]
     Active Substance: DAPAGLIFLOZIN PROPANEDIOL
  3. ENTRESTO [Suspect]
     Active Substance: SACUBITRIL\VALSARTAN
  4. AMIODARONE [Suspect]
     Active Substance: AMIODARONE
  5. AMIODARONE [Suspect]
     Active Substance: AMIODARONE
  6. MELOXICAM [Suspect]
     Active Substance: MELOXICAM
  7. VALSARTAN [Suspect]
     Active Substance: VALSARTAN
  8. METOPROLOL [Suspect]
     Active Substance: METOPROLOL

REACTIONS (4)
  - Ventricular extrasystoles [Unknown]
  - Sleep apnoea syndrome [Unknown]
  - Arthralgia [Unknown]
  - Weight decreased [Unknown]
